FAERS Safety Report 23227496 (Version 1)
Quarter: 2023Q4

REPORT INFORMATION
  Report Type: Spontaneous
  Country: TR (occurrence: TR)
  Receive Date: 20231124
  Receipt Date: 20231124
  Transmission Date: 20240110
  Serious: Yes (Other)
  Sender: FDA-Public Use
  Company Number: TR-BAUSCHBL-2023BNL011872

PATIENT
  Sex: Male

DRUGS (1)
  1. BESIVANCE [Suspect]
     Active Substance: BESIFLOXACIN
     Indication: Conjunctivitis bacterial
     Dosage: 3X1
     Route: 047
     Dates: start: 202310, end: 202310

REACTIONS (1)
  - Corneal erosion [Recovered/Resolved]

NARRATIVE: CASE EVENT DATE: 20231001
